FAERS Safety Report 8974284 (Version 1)
Quarter: 2012Q4

REPORT INFORMATION
  Report Type: Spontaneous
  Country: US (occurrence: None)
  Receive Date: 20121217
  Receipt Date: 20121217
  Transmission Date: 20130627
  Serious: Yes (Hospitalization, Other)
  Sender: FDA-Public Use
  Company Number: None

PATIENT
  Age: 40 Year
  Sex: Female
  Weight: 95.26 kg

DRUGS (3)
  1. DICLOFENAC [Suspect]
     Indication: INFLAMMATION
     Dosage: 1 tab 75mg bid po
     Route: 048
     Dates: start: 20121015, end: 20121215
  2. DICLOFENAC [Suspect]
     Indication: JOINT DYSFUNCTION
     Dosage: 1 tab 75mg bid po
     Route: 048
     Dates: start: 20121015, end: 20121215
  3. DICLOFENAC [Suspect]
     Indication: CHONDROMALACIA
     Dosage: 1 tab 75mg bid po
     Route: 048
     Dates: start: 20121015, end: 20121215

REACTIONS (7)
  - Pain in jaw [None]
  - Feeling abnormal [None]
  - Chest pain [None]
  - Post gastric surgery syndrome [None]
  - Dizziness [None]
  - Hyperhidrosis [None]
  - Asthenia [None]
